FAERS Safety Report 6045993-4 (Version None)
Quarter: 2009Q1

REPORT INFORMATION
  Report Type: 
  Country: None (occurrence: None)
  Receive Date: 20090116
  Receipt Date: 20090102
  Transmission Date: 20090719
  Serious: Yes (Other)
  Sender: FDA-Public Use
  Company Number: DSU-2008-01559

PATIENT
  Sex: Male

DRUGS (1)
  1. BENICAR [Suspect]
     Indication: HYPERTENSION
     Dosage: 20 MG (20 MG, QD) ,PER ORAL
     Route: 048
     Dates: end: 20080101

REACTIONS (3)
  - BLOOD PRESSURE INCREASED [None]
  - SINUS TACHYCARDIA [None]
  - VENTRICULAR TACHYCARDIA [None]
